FAERS Safety Report 7138376-7 (Version None)
Quarter: 2010Q4

REPORT INFORMATION
  Report Type: 
  Country: None (occurrence: None)
  Receive Date: 20101206
  Receipt Date: 20090210
  Transmission Date: 20110411
  Serious: Yes (Other)
  Sender: FDA-Public Use
  Company Number: NL-ROCHE-745707

PATIENT

DRUGS (3)
  1. HERCEPTIN [Suspect]
     Route: 042
  2. HERCEPTIN [Suspect]
     Route: 042
     Dates: start: 20090101
  3. LAPATINIB [Suspect]
     Route: 048
     Dates: end: 20090101

REACTIONS (2)
  - BREAST CANCER [None]
  - MALIGNANT NEOPLASM PROGRESSION [None]
